FAERS Safety Report 7869916-8 (Version None)
Quarter: 2011Q4

REPORT INFORMATION
  Report Type: 
  Country: None (occurrence: None)
  Receive Date: 20111028
  Receipt Date: 20110111
  Transmission Date: 20120403
  Serious: No
  Sender: FDA-Public Use
  Company Number: US-AMGEN-KDL372403

PATIENT
  Age: 40 Year
  Sex: Female

DRUGS (1)
  1. ENBREL [Suspect]
     Indication: ANKYLOSING SPONDYLITIS
     Dosage: 50 MG, QWK
     Route: 058
     Dates: start: 20091016

REACTIONS (9)
  - INJECTION SITE REACTION [None]
  - SINUSITIS [None]
  - INJECTION SITE SWELLING [None]
  - INJECTION SITE PAIN [None]
  - FEELING HOT [None]
  - INJECTION SITE ERYTHEMA [None]
  - VARICOPHLEBITIS [None]
  - EYELID CYST [None]
  - INJECTION SITE HAEMORRHAGE [None]
